FAERS Safety Report 25571206 (Version 2)
Quarter: 2025Q4

REPORT INFORMATION
  Report Type: Spontaneous
  Country: US (occurrence: US)
  Receive Date: 20250717
  Receipt Date: 20251021
  Transmission Date: 20260118
  Serious: No
  Sender: FDC LIMITED
  Company Number: US-FDC-2025USSPO00297

PATIENT
  Sex: Female

DRUGS (1)
  1. TIMOLOL MALEATE [Suspect]
     Active Substance: TIMOLOL MALEATE
     Indication: Glaucoma
     Route: 065

REACTIONS (1)
  - Head discomfort [Unknown]
